FAERS Safety Report 9885687 (Version 2)
Quarter: 2016Q3

REPORT INFORMATION
  Report Type: Spontaneous
  Country: BR (occurrence: BR)
  Receive Date: 20140210
  Receipt Date: 20160722
  Transmission Date: 20161109
  Serious: Yes (Hospitalization, Other)
  Sender: FDA-Public Use
  Company Number: BR-PFIZER INC-2014033897

PATIENT
  Age: 42 Year
  Sex: Female
  Weight: 60 kg

DRUGS (5)
  1. LYRICA [Suspect]
     Active Substance: PREGABALIN
     Indication: ARTHRITIS
     Dosage: 150 MG, 1X/DAY (2 TABLETS OF 75 MG PER DAY OR 1 TABLET OF 150 MG DAILY)
     Route: 048
     Dates: end: 201603
  2. LYRICA [Suspect]
     Active Substance: PREGABALIN
     Dosage: 75 MG, 1X/DAY
  3. LYRICA [Suspect]
     Active Substance: PREGABALIN
     Indication: PAIN
     Dosage: 75 MG, 1X/DAY
     Dates: start: 2012
  4. MIRTAX /00428402/ [Concomitant]
     Indication: ARTHRITIS
     Dosage: 1 TABLET AT NIGHT
     Route: 048
     Dates: start: 201603, end: 201605
  5. ALPRAZOLAM. [Concomitant]
     Active Substance: ALPRAZOLAM
     Indication: ANXIETY
     Dosage: 1 TABLET OF 1 MG AT NIGHT
     Route: 048
     Dates: start: 2013

REACTIONS (7)
  - Pleural effusion [Unknown]
  - Tendonitis [Unknown]
  - Pain [Unknown]
  - Dysstasia [Unknown]
  - Dizziness [Unknown]
  - Pneumonia [Unknown]
  - Nausea [Unknown]

NARRATIVE: CASE EVENT DATE: 201306
